APPROVED DRUG PRODUCT: AMANTADINE HYDROCHLORIDE
Active Ingredient: AMANTADINE HYDROCHLORIDE
Strength: 100MG
Dosage Form/Route: CAPSULE;ORAL
Application: A209221 | Product #001
Applicant: CHARTWELL MOLECULAR HOLDINGS LLC
Approved: Jun 15, 2017 | RLD: No | RS: No | Type: DISCN